FAERS Safety Report 8417323-1 (Version None)
Quarter: 2012Q2

REPORT INFORMATION
  Report Type: 
  Country: None (occurrence: None)
  Receive Date: 20120606
  Receipt Date: 20120522
  Transmission Date: 20120825
  Serious: No
  Sender: FDA-Public Use
  Company Number: US-ASTRAZENECA-2012SE33084

PATIENT
  Age: 78 Year
  Sex: Male

DRUGS (3)
  1. ALBUTEROL [Concomitant]
     Indication: BRONCHITIS CHRONIC
     Dosage: NEB 0.83 PERCENT
  2. AMLODIPINE [Concomitant]
  3. SYMBICORT [Suspect]
     Dosage: 160/4.5 MCG FREQUENCY UNKNOWN
     Route: 055
     Dates: start: 20111201

REACTIONS (6)
  - BRONCHITIS CHRONIC [None]
  - ASTHENIA [None]
  - VERTIGO [None]
  - MUSCLE ATROPHY [None]
  - HEADACHE [None]
  - FATIGUE [None]
